FAERS Safety Report 11937976 (Version 2)
Quarter: 2016Q2

REPORT INFORMATION
  Report Type: Report from Study
  Country: DE (occurrence: DE)
  Receive Date: 20160122
  Receipt Date: 20160419
  Transmission Date: 20160815
  Serious: Yes (Hospitalization)
  Sender: FDA-Public Use
  Company Number: DE-ROCHE-1698410

PATIENT
  Age: 63 Year
  Sex: Female

DRUGS (6)
  1. ASPIRIN. [Concomitant]
     Active Substance: ASPIRIN
     Dosage: 100 MG
     Route: 065
  2. DOXYCYCLIN [Concomitant]
     Active Substance: DOXYCYCLINE
  3. SIMVASTATIN. [Concomitant]
     Active Substance: SIMVASTATIN
  4. CELEBREX [Concomitant]
     Active Substance: CELECOXIB
  5. TOCILIZUMAB [Suspect]
     Active Substance: TOCILIZUMAB
     Indication: RHEUMATOID ARTHRITIS
     Route: 058
  6. REMERGIL [Concomitant]
     Active Substance: MIRTAZAPINE

REACTIONS (1)
  - Transient ischaemic attack [Recovered/Resolved]

NARRATIVE: CASE EVENT DATE: 20151109
